FAERS Safety Report 11196642 (Version 1)
Quarter: 2015Q2

REPORT INFORMATION
  Report Type: Spontaneous
  Country: US (occurrence: None)
  Receive Date: 20150616
  Receipt Date: 20150616
  Transmission Date: 20150821
  Serious: Yes (Life-Threatening, Disabling)
  Sender: FDA-Public Use
  Company Number: None

PATIENT
  Age: 22 Year
  Sex: Female
  Weight: 81.65 kg

DRUGS (1)
  1. REGLAN [Suspect]
     Active Substance: METOCLOPRAMIDE HYDROCHLORIDE
     Route: 042

REACTIONS (7)
  - Loss of consciousness [None]
  - Cluster headache [None]
  - Muscle contractions involuntary [None]
  - Disability [None]
  - Panic attack [None]
  - Depression [None]
  - Visual impairment [None]

NARRATIVE: CASE EVENT DATE: 20140623
